FAERS Safety Report 17165277 (Version 2)
Quarter: 2021Q4

REPORT INFORMATION
  Report Type: Report from Study
  Country: DE (occurrence: DE)
  Receive Date: 20191217
  Receipt Date: 20211214
  Transmission Date: 20220303
  Serious: Yes (Death, Other)
  Sender: FDA-Public Use
  Company Number: DE-PFIZER INC-2019537930

PATIENT

DRUGS (5)
  1. LEUCOVORIN CALCIUM [Suspect]
     Active Substance: LEUCOVORIN CALCIUM
     Indication: Rectal adenocarcinoma
     Dosage: 400 MG/M2, CYCLIC (2-HOUR INFUSION, REPEATED ON DAY 15 FOR A TOTAL OF THREE CYCLES)
  2. FLUOROURACIL [Suspect]
     Active Substance: FLUOROURACIL
     Indication: Rectal adenocarcinoma
     Dosage: 2400 MG/M2, CYCLIC (CONTINUOUS 46-HOUR INFUSION, REPEATED ON DAY 15 FOR A TOTAL OF THREE CYCLES)
  3. FLUOROURACIL [Suspect]
     Active Substance: FLUOROURACIL
     Dosage: 250 MG/M2, CYCLIC  (ON DAYS 1 TO 14 AND 22 TO 35)
  4. OXALIPLATIN [Suspect]
     Active Substance: OXALIPLATIN
     Indication: Rectal adenocarcinoma
     Dosage: 100 MG/M2, CYCLIC (2-HOUR INFUSION, REPEATED ON DAY 15 FOR A TOTAL OF THREE CYCLES)
  5. OXALIPLATIN [Suspect]
     Active Substance: OXALIPLATIN
     Dosage: 50 MG/M2, CYCLIC (2-HOUR INFUSION ON DAYS 1,8, 22, AND 29)

REACTIONS (2)
  - Sepsis [Fatal]
  - Multiple organ dysfunction syndrome [Fatal]
